FAERS Safety Report 16265983 (Version 1)
Quarter: 2019Q2

REPORT INFORMATION
  Report Type: Spontaneous
  Country: PT (occurrence: PT)
  Receive Date: 20190502
  Receipt Date: 20190502
  Transmission Date: 20190711
  Serious: Yes (Other)
  Sender: FDA-Public Use
  Company Number: PT-MYLANLABS-2019M1041959

PATIENT
  Age: 16 Year
  Sex: Male

DRUGS (8)
  1. SERTRALINE [Suspect]
     Active Substance: SERTRALINE HYDROCHLORIDE
     Indication: DISTURBANCE IN ATTENTION
     Dosage: 100 MG, QD
     Route: 048
     Dates: start: 20060123
  2. SERTRALINE [Suspect]
     Active Substance: SERTRALINE HYDROCHLORIDE
     Indication: DEPRESSION
  3. SERTRALINE [Suspect]
     Active Substance: SERTRALINE HYDROCHLORIDE
     Indication: INITIAL INSOMNIA
  4. ALPRAZOLAM. [Concomitant]
     Active Substance: ALPRAZOLAM
     Dosage: 0.5 MILLIGRAM, BID (0.5 MG, BID)
     Route: 048
  5. DIAZEPAM. [Concomitant]
     Active Substance: DIAZEPAM
  6. SERTRALINE [Suspect]
     Active Substance: SERTRALINE HYDROCHLORIDE
     Indication: MERYCISM
  7. SERTRALINE [Suspect]
     Active Substance: SERTRALINE HYDROCHLORIDE
     Indication: ANXIETY
  8. SERTRALINE [Suspect]
     Active Substance: SERTRALINE HYDROCHLORIDE
     Indication: TERMINAL INSOMNIA

REACTIONS (8)
  - Asthenia [Unknown]
  - Insomnia [Recovered/Resolved]
  - Increased appetite [Unknown]
  - Suicidal ideation [Recovered/Resolved]
  - Thinking abnormal [Unknown]
  - Cyclothymic disorder [Unknown]
  - Social problem [Recovered/Resolved]
  - Learning disorder [Recovered/Resolved]

NARRATIVE: CASE EVENT DATE: 20060208
